FAERS Safety Report 5776081-X (Version None)
Quarter: 2008Q2

REPORT INFORMATION
  Report Type: 
  Country: None (occurrence: None)
  Receive Date: 20080613
  Receipt Date: 20080605
  Transmission Date: 20081010
  Serious: Yes (Life-Threatening, Hospitalization)
  Sender: FDA-Public Use
  Company Number: TCI2008A02453

PATIENT
  Age: 76 Year
  Sex: Female

DRUGS (4)
  1. ACTOS [Suspect]
     Indication: DIABETES MELLITUS
     Dosage: 15 MG (15 MG, 1 IN 1 D), PER ORAL
     Route: 048
     Dates: start: 20080402, end: 20080402
  2. LIPITOR [Concomitant]
  3. TENORMIN [Concomitant]
  4. CONIEL (BENIDIPINE HYDROCHLORIDE) [Concomitant]

REACTIONS (5)
  - ASTHENIA [None]
  - INFECTION [None]
  - INFLAMMATION [None]
  - PAIN [None]
  - WHITE BLOOD CELL COUNT INCREASED [None]
